FAERS Safety Report 4312769-5 (Version None)
Quarter: 2004Q1

REPORT INFORMATION
  Report Type: 
  Country: None (occurrence: None)
  Receive Date: 20040304
  Receipt Date: 20040224
  Transmission Date: 20041129
  Serious: Yes (Hospitalization, Other)
  Sender: FDA-Public Use
  Company Number: GB9177019SEP2002

PATIENT
  Age: 66 Year
  Sex: Male

DRUGS (21)
  1. RAPAMUNE [Suspect]
     Indication: IMMUNOSUPPRESSION
     Dosage: SEE IMAGE
     Route: 048
     Dates: start: 20011103, end: 20011103
  2. RAPAMUNE [Suspect]
     Indication: RENAL TRANSPLANT
     Dosage: SEE IMAGE
     Route: 048
     Dates: start: 20011103, end: 20011103
  3. RAPAMUNE [Suspect]
     Indication: IMMUNOSUPPRESSION
     Dosage: SEE IMAGE
     Route: 048
     Dates: start: 20011104, end: 20020218
  4. RAPAMUNE [Suspect]
     Indication: RENAL TRANSPLANT
     Dosage: SEE IMAGE
     Route: 048
     Dates: start: 20011104, end: 20020218
  5. RAPAMUNE [Suspect]
     Indication: IMMUNOSUPPRESSION
     Dosage: SEE IMAGE
     Route: 048
     Dates: start: 20020219, end: 20020219
  6. RAPAMUNE [Suspect]
     Indication: RENAL TRANSPLANT
     Dosage: SEE IMAGE
     Route: 048
     Dates: start: 20020219, end: 20020219
  7. RAPAMUNE [Suspect]
     Indication: IMMUNOSUPPRESSION
     Dosage: SEE IMAGE
     Route: 048
     Dates: start: 20020220, end: 20020619
  8. RAPAMUNE [Suspect]
     Indication: RENAL TRANSPLANT
     Dosage: SEE IMAGE
     Route: 048
     Dates: start: 20020220, end: 20020619
  9. RAPAMUNE [Suspect]
     Indication: IMMUNOSUPPRESSION
     Dosage: SEE IMAGE
     Route: 048
     Dates: start: 20020620, end: 20020909
  10. RAPAMUNE [Suspect]
     Indication: RENAL TRANSPLANT
     Dosage: SEE IMAGE
     Route: 048
     Dates: start: 20020620, end: 20020909
  11. RAPAMUNE [Suspect]
     Indication: IMMUNOSUPPRESSION
     Dosage: SEE IMAGE
     Route: 048
     Dates: end: 20020925
  12. RAPAMUNE [Suspect]
     Indication: RENAL TRANSPLANT
     Dosage: SEE IMAGE
     Route: 048
     Dates: end: 20020925
  13. RAPAMUNE [Suspect]
     Indication: IMMUNOSUPPRESSION
     Dosage: SEE IMAGE
     Route: 048
     Dates: start: 20020910
  14. RAPAMUNE [Suspect]
     Indication: RENAL TRANSPLANT
     Dosage: SEE IMAGE
     Route: 048
     Dates: start: 20020910
  15. NEORAL [Concomitant]
  16. METHYLPREDNISOLONE [Concomitant]
  17. PREDNSOLONE (PREDNISOLONE) [Concomitant]
  18. AMPHOTERICIN B [Concomitant]
  19. SULFAMETHOXAZOLE + TRIMETHOPRIM [Concomitant]
  20. ATENOLOL [Concomitant]
  21. NEXIUM [Concomitant]

REACTIONS (8)
  - ACQUIRED DIAPHRAGMATIC EVENTRATION [None]
  - ELECTROENCEPHALOGRAM ABNORMAL [None]
  - LETHARGY [None]
  - MALAISE [None]
  - NEUROTOXICITY [None]
  - SCAR [None]
  - VENTRICULAR EXTRASYSTOLES [None]
  - WHITE BLOOD CELL COUNT DECREASED [None]
